FAERS Safety Report 8264449-1 (Version None)
Quarter: 2012Q2

REPORT INFORMATION
  Report Type: 
  Country: None (occurrence: None)
  Receive Date: 20120406
  Receipt Date: 20120403
  Transmission Date: 20120825
  Serious: No
  Sender: FDA-Public Use
  Company Number: US-PFIZER INC-2012084471

PATIENT
  Sex: Female
  Weight: 43.537 kg

DRUGS (4)
  1. PRILOSEC [Concomitant]
     Dosage: UNK
  2. CALCIUM [Concomitant]
     Indication: OSTEOPOROSIS
     Dosage: UNK
  3. XANAX [Suspect]
     Dosage: UNKN, AS NEEDED
     Route: 048
  4. CHANTIX [Suspect]
     Indication: SMOKING CESSATION THERAPY
     Dosage: 1 MG, 2X/DAY
     Route: 048
     Dates: start: 20120301, end: 20120403

REACTIONS (5)
  - FEELING ABNORMAL [None]
  - READING DISORDER [None]
  - ABDOMINAL PAIN [None]
  - MALAISE [None]
  - NAUSEA [None]
